FAERS Safety Report 14013559 (Version 2)
Quarter: 2017Q3

REPORT INFORMATION
  Report Type: Report from Study
  Country: US (occurrence: US)
  Receive Date: 20170926
  Receipt Date: 20170927
  Transmission Date: 20171128
  Serious: Yes (Hospitalization)
  Sender: FDA-Public Use
  Company Number: US-EISAI MEDICAL RESEARCH-EC-2017-027716

PATIENT
  Age: 63 Year
  Sex: Male
  Weight: 60.78 kg

DRUGS (13)
  1. IMODIUM [Concomitant]
     Active Substance: LOPERAMIDE HYDROCHLORIDE
  2. LEVAQUIN [Concomitant]
     Active Substance: LEVOFLOXACIN
  3. MOTRIN [Concomitant]
     Active Substance: IBUPROFEN
  4. SENOKOT-S [Concomitant]
     Active Substance: DOCUSATE SODIUM\SENNOSIDES
  5. AFINITOR [Concomitant]
     Active Substance: EVEROLIMUS
  6. OXYCODONE [Concomitant]
     Active Substance: OXYCODONE
  7. RAPAFLO [Concomitant]
     Active Substance: SILODOSIN
  8. LENVIMA [Suspect]
     Active Substance: LENVATINIB
     Route: 048
     Dates: start: 20170913
  9. DECADRON [Concomitant]
     Active Substance: DEXAMETHASONE
  10. LABETALOL [Concomitant]
     Active Substance: LABETALOL\LABETALOL HYDROCHLORIDE
  11. LOVENOX [Concomitant]
     Active Substance: ENOXAPARIN SODIUM
  12. LENVIMA [Suspect]
     Active Substance: LENVATINIB
     Indication: RENAL CANCER METASTATIC
     Route: 048
     Dates: start: 201705, end: 20170809
  13. MIRALAX [Concomitant]
     Active Substance: POLYETHYLENE GLYCOL 3350

REACTIONS (7)
  - Septic embolus [Recovering/Resolving]
  - Dizziness [Recovered/Resolved]
  - Blood pressure increased [Recovering/Resolving]
  - Intracranial tumour haemorrhage [Recovered/Resolved]
  - Syncope [Recovered/Resolved]
  - Mental status changes [Recovered/Resolved]
  - Loss of consciousness [Recovered/Resolved]

NARRATIVE: CASE EVENT DATE: 201705
